FAERS Safety Report 5282225-9 (Version None)
Quarter: 2007Q1

REPORT INFORMATION
  Report Type: 
  Country: None (occurrence: None)
  Receive Date: 20070330
  Receipt Date: 20070320
  Transmission Date: 20070707
  Serious: Yes (Other)
  Sender: FDA-Public Use
  Company Number: DZ-PFIZER INC-2007022127

PATIENT
  Age: 69 Year
  Sex: Female

DRUGS (2)
  1. AMLOR [Suspect]
     Indication: HYPERTENSION
     Route: 048
     Dates: start: 20070318, end: 20070319
  2. MODURETIC 5-50 [Concomitant]
     Dosage: TEXT:1 TABLET-FREQ:DAILY
     Route: 048

REACTIONS (2)
  - DISCOMFORT [None]
  - HOT FLUSH [None]
